FAERS Safety Report 4882383-1 (Version None)
Quarter: 2005Q4

REPORT INFORMATION
  Report Type: 
  Country: None (occurrence: None)
  Receive Date: 20051201
  Receipt Date: 20050725
  Transmission Date: 20060501
  Serious: No
  Sender: FDA-Public Use
  Company Number: 2005PV000613

PATIENT
  Age: 80 Year
  Sex: Female
  Weight: 74.3899 kg

DRUGS (14)
  1. BYETTA [Suspect]
     Indication: DIABETES MELLITUS NON-INSULIN-DEPENDENT
     Dosage: 5 MCG;BID;SC
     Route: 058
     Dates: start: 20050721
  2. ARICEPT [Suspect]
     Indication: DRUG USE FOR UNKNOWN INDICATION
     Dosage: 10;HS
  3. RAMIPRIL [Concomitant]
  4. FUROSEMIDE [Concomitant]
  5. ASPIRIN [Concomitant]
  6. PIOGLITAZONE HCL [Concomitant]
  7. SYNTHROID [Concomitant]
  8. K-DUR 10 [Concomitant]
  9. ROSUVASTATIN [Concomitant]
  10. TOPROL-XL [Concomitant]
  11. REPAGLINIDE [Concomitant]
  12. PRANDIN [Concomitant]
  13. EPOGEN [Concomitant]
  14. CRESTOR [Concomitant]

REACTIONS (6)
  - DRUG INTERACTION [None]
  - FATIGUE [None]
  - LETHARGY [None]
  - NAUSEA [None]
  - SEDATION [None]
  - SOMNOLENCE [None]
